FAERS Safety Report 9223075 (Version 3)
Quarter: 2014Q1

REPORT INFORMATION
  Report Type: Report from Study
  Country: JP (occurrence: JP)
  Receive Date: 20130410
  Receipt Date: 20140106
  Transmission Date: 20141002
  Serious: Yes (Hospitalization)
  Sender: FDA-Public Use
  Company Number: PHHY2013JP033749

PATIENT
  Age: 71 Year
  Sex: Female

DRUGS (11)
  1. AMN107 [Suspect]
     Indication: CHRONIC MYELOID LEUKAEMIA
     Dosage: 800 MG, DAILY
     Route: 048
     Dates: start: 20090323
  2. SENNOSIDE [Concomitant]
     Dosage: 24 MG
     Route: 048
     Dates: start: 20110210
  3. LASIX [Concomitant]
     Dosage: 20 MG
     Route: 048
     Dates: start: 20080220, end: 20090430
  4. FERROMIA [Concomitant]
     Dosage: 100 MG
     Route: 048
     Dates: start: 20090406
  5. FERROMIA [Concomitant]
     Dosage: 50 MG
     Dates: start: 20091227
  6. MAGLAX [Concomitant]
     Indication: PROPHYLAXIS
     Dosage: 1 G
     Route: 048
     Dates: start: 20091005
  7. TAKEPRON [Concomitant]
     Dosage: 30 MG
     Route: 048
     Dates: start: 20100715
  8. TAKEPRON [Concomitant]
     Dosage: 15 MG
     Route: 048
  9. BAYASPIRIN [Concomitant]
     Indication: PROPHYLAXIS
     Dosage: 300 MG
     Route: 048
     Dates: start: 20110202
  10. BAYASPIRIN [Concomitant]
     Dosage: 100 MG
     Route: 048
  11. LENDORMIN [Concomitant]
     Indication: INSOMNIA
     Dosage: 0.125 MG, UNK
     Route: 048
     Dates: start: 20090529

REACTIONS (1)
  - Cerebral infarction [Recovered/Resolved with Sequelae]
